FAERS Safety Report 25901488 (Version 2)
Quarter: 2025Q4

REPORT INFORMATION
  Report Type: Spontaneous
  Country: EU (occurrence: EU)
  Receive Date: 20251009
  Receipt Date: 20251222
  Transmission Date: 20260117
  Serious: Yes (Other)
  Sender: ABBVIE
  Company Number: EU-ABBVIE-6493480

PATIENT
  Age: 52 Year
  Sex: Male

DRUGS (1)
  1. RINVOQ [Suspect]
     Active Substance: UPADACITINIB
     Indication: Psoriatic arthropathy
     Route: 048
     Dates: start: 202410, end: 202504

REACTIONS (12)
  - Interstitial lung disease [Unknown]
  - Sacral pain [Unknown]
  - Plantar fasciitis [Unknown]
  - Enthesopathy [Unknown]
  - Respiratory tract infection viral [Recovered/Resolved]
  - Lymphadenopathy [Unknown]
  - Arthralgia [Unknown]
  - Psoriasis [Unknown]
  - Epicondylitis [Unknown]
  - Greater trochanteric pain syndrome [Unknown]
  - Myalgia [Unknown]
  - Nausea [Unknown]

NARRATIVE: CASE EVENT DATE: 20250101
